FAERS Safety Report 5164030-7 (Version None)
Quarter: 2006Q4

REPORT INFORMATION
  Report Type: 
  Country: None (occurrence: None)
  Receive Date: 20061204
  Receipt Date: 20061128
  Transmission Date: 20070319
  Serious: Yes (Hospitalization)
  Sender: FDA-Public Use
  Company Number: US-ROXANE LABORATORIES, INC-2006-DE-06301GD

PATIENT
  Age: 56 Year
  Sex: Female

DRUGS (2)
  1. NAPROXEN [Suspect]
     Indication: RHEUMATOID ARTHRITIS
  2. ROFECOXIB [Suspect]
     Indication: RHEUMATOID ARTHRITIS

REACTIONS (5)
  - GASTRIC DISORDER [None]
  - GASTROINTESTINAL HAEMORRHAGE [None]
  - INTESTINAL DIAPHRAGM DISEASE [None]
  - INTESTINAL OBSTRUCTION [None]
  - NAUSEA [None]
